FAERS Safety Report 17360358 (Version 2)
Quarter: 2020Q1

REPORT INFORMATION
  Report Type: Spontaneous
  Country: US (occurrence: US)
  Receive Date: 20200203
  Receipt Date: 20200204
  Transmission Date: 20200409
  Serious: No
  Sender: FDA-Public Use
  Company Number: US-MACLEODS PHARMACEUTICALS US LTD-MAC2020024993

PATIENT

DRUGS (2)
  1. MONTELUKAST [Suspect]
     Active Substance: MONTELUKAST SODIUM
     Indication: ASTHMA
     Dosage: UNK, QD, ONE TIME A DAY AT NIGHT
     Route: 065
     Dates: start: 20190819, end: 20191204
  2. MONTELUKAST [Suspect]
     Active Substance: MONTELUKAST SODIUM
     Dosage: UNK, QD, ONE TIME A DAY AT NIGHT
     Route: 065
     Dates: start: 20191226

REACTIONS (1)
  - Therapeutic response unexpected [Unknown]
